FAERS Safety Report 8225934-1 (Version None)
Quarter: 2012Q1

REPORT INFORMATION
  Report Type: 
  Country: None (occurrence: None)
  Receive Date: 20120321
  Receipt Date: 20120313
  Transmission Date: 20120608
  Serious: Yes (Hospitalization)
  Sender: FDA-Public Use
  Company Number: JP-CELGENEUS-087-21660-12031689

PATIENT
  Sex: Female
  Weight: 54 kg

DRUGS (1)
  1. ABRAXANE [Suspect]
     Indication: BREAST CANCER METASTATIC
     Dosage: 227 MILLIGRAM
     Route: 065
     Dates: start: 20111129

REACTIONS (1)
  - PARKINSON'S DISEASE [None]
